FAERS Safety Report 4325164-X (Version None)
Quarter: 2004Q1

REPORT INFORMATION
  Report Type: 
  Country: None (occurrence: None)
  Receive Date: 20040326
  Receipt Date: 20040225
  Transmission Date: 20041129
  Serious: Yes (Hospitalization)
  Sender: FDA-Public Use
  Company Number: US-MERCK-0402USA01894

PATIENT
  Age: 78 Year
  Sex: Female
  Weight: 99 kg

DRUGS (9)
  1. [THERAPY UNSPECIFIED] [Concomitant]
     Indication: HYPERLIPIDAEMIA
  2. PROVENTIL [Concomitant]
  3. TENORMIN [Concomitant]
  4. LASIX [Concomitant]
     Indication: CARDIAC FAILURE
  5. DIABETA [Concomitant]
  6. COZAAR [Concomitant]
  7. SINGULAIR [Suspect]
     Indication: ASTHMA
     Route: 048
     Dates: start: 20010101, end: 20040101
  8. AVANDIA [Concomitant]
     Indication: DIABETES MELLITUS
  9. SEREVENT DISK [Concomitant]

REACTIONS (42)
  - ASTHMA [None]
  - ATELECTASIS [None]
  - ATRIAL FIBRILLATION [None]
  - BLOOD GLUCOSE FLUCTUATION [None]
  - BLOOD PRESSURE SYSTOLIC INCREASED [None]
  - BRONCHITIS ACUTE [None]
  - BRONCHOSPASM [None]
  - CARDIAC FAILURE [None]
  - CHEST PAIN [None]
  - CORONARY ARTERY ATHEROSCLEROSIS [None]
  - DECREASED APPETITE [None]
  - DIABETES MELLITUS NON-INSULIN-DEPENDENT [None]
  - DRY THROAT [None]
  - DUODENAL ULCER [None]
  - DUODENITIS [None]
  - FATIGUE [None]
  - GASTRIC POLYPS [None]
  - GASTRIC ULCER [None]
  - GASTRITIS [None]
  - GRAVITATIONAL OEDEMA [None]
  - HAEMOGLOBIN DECREASED [None]
  - HEART RATE INCREASED [None]
  - HOARSENESS [None]
  - HYPOCHLORAEMIA [None]
  - HYPONATRAEMIA [None]
  - INAPPROPRIATE ANTIDIURETIC HORMONE SECRETION [None]
  - LETHARGY [None]
  - LEUKOCYTOSIS [None]
  - LOOSE STOOLS [None]
  - LUNG INFILTRATION [None]
  - MOBILITY DECREASED [None]
  - MUSCULOSKELETAL PAIN [None]
  - OEDEMA PERIPHERAL [None]
  - OESOPHAGEAL STENOSIS [None]
  - PANCREATITIS ACUTE [None]
  - PHARYNGOLARYNGEAL PAIN [None]
  - PULMONARY HYPERTENSION [None]
  - PULMONARY OEDEMA [None]
  - SHIFT TO THE LEFT [None]
  - SINUS CONGESTION [None]
  - TACHYARRHYTHMIA [None]
  - ULCER [None]
